FAERS Safety Report 12012566 (Version 15)
Quarter: 2017Q1

REPORT INFORMATION
  Report Type: Report from Study
  Country: US (occurrence: US)
  Receive Date: 20160205
  Receipt Date: 20170106
  Transmission Date: 20170428
  Serious: Yes (Hospitalization)
  Sender: FDA-Public Use
  Company Number: US-B.I. PHARMACEUTICALS,INC./RIDGEFIELD-2015-BI-70522BP

PATIENT
  Sex: Male

DRUGS (2)
  1. OFEV [Suspect]
     Active Substance: NINTEDANIB
     Indication: IDIOPATHIC PULMONARY FIBROSIS
     Route: 048
     Dates: start: 20151215
  2. OFEV [Suspect]
     Active Substance: NINTEDANIB
     Route: 048
     Dates: start: 20160106

REACTIONS (23)
  - Liver function test increased [Unknown]
  - Productive cough [Unknown]
  - Dyspnoea exertional [Unknown]
  - Dysgeusia [Unknown]
  - Dizziness [Unknown]
  - Cough [Unknown]
  - Abnormal faeces [Unknown]
  - Diarrhoea [Unknown]
  - Heart rate irregular [Unknown]
  - Nasal discomfort [Unknown]
  - Diarrhoea [Not Recovered/Not Resolved]
  - Faeces soft [Unknown]
  - Rash erythematous [Unknown]
  - Abasia [Unknown]
  - Fluid retention [Unknown]
  - Blood pressure fluctuation [Unknown]
  - Heart rate increased [Unknown]
  - Ageusia [Unknown]
  - Cardiac ablation [Unknown]
  - Asthenia [Unknown]
  - Weight decreased [Unknown]
  - Gastrointestinal disorder [Unknown]
  - Decreased appetite [Unknown]
